FAERS Safety Report 11887461 (Version 1)
Quarter: 2016Q1

REPORT INFORMATION
  Report Type: Spontaneous
  Country: FR (occurrence: FR)
  Receive Date: 20160105
  Receipt Date: 20160105
  Transmission Date: 20160526
  Serious: Yes (Other)
  Sender: FDA-Public Use
  Company Number: FR-AJANTA PHARMA USA INC.-1046112

PATIENT
  Age: 25 Year
  Sex: Male

DRUGS (3)
  1. LEVOMEPROMAZINE [Concomitant]
     Active Substance: LEVOMEPROMAZINE
  2. LOXAPINE SUCCINATE. [Suspect]
     Active Substance: LOXAPINE SUCCINATE
     Route: 048
  3. RISPERIDONE. [Suspect]
     Active Substance: RISPERIDONE
     Indication: AGITATION
     Route: 048

REACTIONS (3)
  - Acute kidney injury [Recovered/Resolved]
  - Deep vein thrombosis [Recovered/Resolved]
  - Rhabdomyolysis [Recovered/Resolved]
